FAERS Safety Report 6537951-8 (Version None)
Quarter: 2009Q4

REPORT INFORMATION
  Report Type: 
  Country: None (occurrence: None)
  Receive Date: 20091229
  Receipt Date: 20091124
  Transmission Date: 20100525
  Serious: No
  Sender: FDA-Public Use
  Company Number: 1000010365

PATIENT

DRUGS (1)
  1. BYSTOLIC [Suspect]
     Dosage: ORAL
     Route: 048

REACTIONS (1)
  - DYSGEUSIA [None]
